FAERS Safety Report 8694774 (Version 2)
Quarter: 2012Q4

REPORT INFORMATION
  Report Type: 
  Country: GR (occurrence: GR)
  Receive Date: 20120731
  Receipt Date: 20120907
  Transmission Date: 20130627
  Serious: Yes (Other)
  Sender: FDA-Public Use
  Company Number: GR-PFIZER INC-2012164912

PATIENT
  Age: 77 Year
  Sex: Male

DRUGS (1)
  1. TORISEL [Suspect]
     Indication: MANTLE CELL LYMPHOMA
     Dosage: 75 mg, weekly
     Dates: start: 20120622, end: 2012

REACTIONS (3)
  - Tongue ulceration [Recovered/Resolved]
  - Aphthous stomatitis [Recovered/Resolved]
  - Oral pain [Recovered/Resolved]
